FAERS Safety Report 16346312 (Version 2)
Quarter: 2019Q2

REPORT INFORMATION
  Report Type: Spontaneous
  Country: US (occurrence: US)
  Receive Date: 20190523
  Receipt Date: 20190524
  Transmission Date: 20190711
  Serious: No
  Sender: FDA-Public Use
  Company Number: US-PFIZER INC-2019093823

PATIENT
  Age: 77 Year
  Sex: Male

DRUGS (3)
  1. DETROL LA [Suspect]
     Active Substance: TOLTERODINE TARTRATE
     Dosage: 4 MG, UNK (2 OF THE 2MG)
  2. DETROL LA [Suspect]
     Active Substance: TOLTERODINE TARTRATE
     Dosage: 4 MG, UNK
  3. DETROL LA [Suspect]
     Active Substance: TOLTERODINE TARTRATE
     Dosage: 6 MG, DAILY (TAKING A NUMBER 4(MG) AND A NUMBER 2(MG))

REACTIONS (2)
  - Product use issue [Unknown]
  - Off label use [Unknown]
